FAERS Safety Report 5531492-2 (Version None)
Quarter: 2007Q4

REPORT INFORMATION
  Report Type: 
  Country: None (occurrence: None)
  Receive Date: 20071203
  Receipt Date: 20071128
  Transmission Date: 20080405
  Serious: Yes (Hospitalization)
  Sender: FDA-Public Use
  Company Number: FR-BRISTOL-MYERS SQUIBB COMPANY-13998430

PATIENT
  Age: 75 Year
  Sex: Female

DRUGS (5)
  1. COAPROVEL TABS [Suspect]
  2. EUPRESSYL [Suspect]
  3. ZYLORIC [Suspect]
  4. KARDEGIC [Suspect]
  5. SERETIDE [Suspect]
     Dosage: 1 DOSAGE FORM = 500/50MG.

REACTIONS (1)
  - POLYNEUROPATHY IDIOPATHIC PROGRESSIVE [None]
